FAERS Safety Report 9688189 (Version 1)
Quarter: 2013Q4

REPORT INFORMATION
  Report Type: Spontaneous
  Country: DE (occurrence: DE)
  Receive Date: 20131114
  Receipt Date: 20131114
  Transmission Date: 20140711
  Serious: Yes (Death, Other)
  Sender: FDA-Public Use
  Company Number: DE-BRISTOL-MYERS SQUIBB COMPANY-19806801

PATIENT
  Age: 51 Year
  Sex: Male

DRUGS (9)
  1. CETUXIMAB [Suspect]
     Indication: COLORECTAL CANCER METASTATIC
     Dosage: LAST DOSE: 26JUL2013
     Route: 065
     Dates: start: 20130724, end: 20130726
  2. FLUOROURACIL [Suspect]
     Indication: COLORECTAL CANCER METASTATIC
     Route: 042
  3. OXALIPLATIN [Suspect]
     Indication: COLORECTAL CANCER METASTATIC
  4. AVASTIN [Suspect]
     Indication: COLORECTAL CANCER METASTATIC
     Dosage: INTERRUPTED ON 10JUL2013
     Route: 042
     Dates: start: 20130306
  5. IRINOTECAN [Suspect]
     Indication: COLORECTAL CANCER METASTATIC
     Route: 042
     Dates: start: 201303
  6. FOLINIC ACID [Suspect]
     Indication: COLORECTAL CANCER METASTATIC
  7. LEUCOVORIN [Suspect]
     Indication: COLORECTAL CANCER METASTATIC
     Route: 042
     Dates: start: 201303
  8. METOCLOPRAMIDE [Concomitant]
     Route: 048
  9. DOXYCYCLINE [Concomitant]
     Route: 048
     Dates: start: 201209

REACTIONS (2)
  - Enterovesical fistula [Fatal]
  - Metastasis [Unknown]
